FAERS Safety Report 6273627-2 (Version None)
Quarter: 2009Q3

REPORT INFORMATION
  Report Type: 
  Country: None (occurrence: None)
  Receive Date: 20090720
  Receipt Date: 20090619
  Transmission Date: 20100115
  Serious: No
  Sender: FDA-Public Use
  Company Number: US-BAYER-200924125NA

PATIENT
  Age: 24 Year
  Sex: Female

DRUGS (2)
  1. YAZ [Suspect]
     Indication: DRUG USE FOR UNKNOWN INDICATION
     Dosage: 1 TAB/DAY
     Route: 048
     Dates: start: 20090501
  2. HUMIRA [Suspect]
     Indication: CROHN'S DISEASE

REACTIONS (3)
  - HERPES ZOSTER [None]
  - RASH [None]
  - RASH PAPULAR [None]
